FAERS Safety Report 8318428-6 (Version None)
Quarter: 2012Q2

REPORT INFORMATION
  Report Type: 
  Country: None (occurrence: None)
  Receive Date: 20120426
  Receipt Date: 20120426
  Transmission Date: 20120825
  Serious: No
  Sender: FDA-Public Use
  Company Number: None

PATIENT
  Age: 57 Year
  Sex: Female

DRUGS (4)
  1. ASPIRIN [Concomitant]
  2. FLONASE [Concomitant]
  3. VITAMIN B-12 [Concomitant]
  4. REVLIMID [Suspect]
     Indication: MULTIPLE MYELOMA
     Dosage: 5MG QD ORALLY
     Route: 048
     Dates: start: 20111101, end: 20120401

REACTIONS (3)
  - NEUTROPENIA [None]
  - PANCYTOPENIA [None]
  - INFECTION [None]
